FAERS Safety Report 10636053 (Version 1)
Quarter: 2014Q4

REPORT INFORMATION
  Report Type: Spontaneous
  Country: AU (occurrence: AU)
  Receive Date: 20141205
  Receipt Date: 20141205
  Transmission Date: 20150529
  Serious: Yes (Hospitalization)
  Sender: FDA-Public Use
  Company Number: AU-ASTRAZENECA-2014SE91918

PATIENT
  Age: 52 Year
  Sex: Female

DRUGS (16)
  1. DOXYCYCLINE HYDROCHLORIDE [Concomitant]
     Active Substance: DOXYCYCLINE HYDROCHLORIDE
  2. SIGMACORT [Concomitant]
  3. ZOLOFT [Concomitant]
     Active Substance: SERTRALINE HYDROCHLORIDE
  4. THYROXINE SODIUM [Suspect]
     Active Substance: LEVOTHYROXINE SODIUM
     Dosage: 150 MCG (SATURDAY AND SUNDAY)
     Route: 048
  5. YASMIN [Concomitant]
     Active Substance: DROSPIRENONE\ETHINYL ESTRADIOL
  6. TOPAMAX [Suspect]
     Active Substance: TOPIRAMATE
     Indication: MIGRAINE PROPHYLAXIS
     Route: 048
     Dates: start: 20140320
  7. DIAZEPAM. [Concomitant]
     Active Substance: DIAZEPAM
  8. FLUVAX [Concomitant]
     Active Substance: INFLUENZA VIRUS VACCINE
  9. ZOMIG [Suspect]
     Active Substance: ZOLMITRIPTAN
     Route: 048
  10. TOPAMAX [Suspect]
     Active Substance: TOPIRAMATE
     Indication: MIGRAINE PROPHYLAXIS
     Dosage: 25 MG 1 IN THE MORNING AND 2 AT NIGHT
     Route: 048
  11. NOTEN [Concomitant]
     Active Substance: ATENOLOL
  12. XYDEP [Concomitant]
  13. TOPAMAX [Suspect]
     Active Substance: TOPIRAMATE
     Indication: MIGRAINE PROPHYLAXIS
     Dosage: 25 MG 2 AT NIGHT FOR A WEEK
     Route: 048
  14. ELOCON [Concomitant]
     Active Substance: MOMETASONE FUROATE
  15. MAXOLON [Concomitant]
     Active Substance: METOCLOPRAMIDE HYDROCHLORIDE
  16. THYROXINE SODIUM [Suspect]
     Active Substance: LEVOTHYROXINE SODIUM
     Dosage: 100 MCG FROM (MONDAY-FRIDAY)
     Route: 048

REACTIONS (22)
  - Weight increased [Unknown]
  - Musculoskeletal stiffness [Unknown]
  - Disturbance in attention [Unknown]
  - Lipoma [Unknown]
  - Headache [Unknown]
  - Eye pain [Unknown]
  - Muscle tightness [Unknown]
  - Stress [Unknown]
  - Anxiety [Unknown]
  - Neck pain [Unknown]
  - Vision blurred [Unknown]
  - Abdominal hernia [Unknown]
  - Sleep disorder [Unknown]
  - Chest discomfort [Unknown]
  - Hypothyroidism [Unknown]
  - Skin lesion [Unknown]
  - Nausea [Unknown]
  - Paraesthesia oral [Unknown]
  - Psychotic disorder [Recovering/Resolving]
  - Migraine [Unknown]
  - Decreased interest [Unknown]
  - Hypersomnia [Unknown]

NARRATIVE: CASE EVENT DATE: 201211
